FAERS Safety Report 4384816-6 (Version None)
Quarter: 2004Q2

REPORT INFORMATION
  Report Type: 
  Country: None (occurrence: None)
  Receive Date: 20040621
  Receipt Date: 20040604
  Transmission Date: 20050107
  Serious: Yes (Hospitalization)
  Sender: FDA-Public Use
  Company Number: 6009115

PATIENT
  Sex: Male

DRUGS (1)
  1. LODOZ (HYDROCHLOROTHIAZIDE, BISOPROLOL FUMARATE) [Suspect]
     Indication: HYPERTENSION

REACTIONS (1)
  - MANIA [None]
